FAERS Safety Report 10043259 (Version 1)
Quarter: 2014Q1

REPORT INFORMATION
  Report Type: Spontaneous
  Country: US (occurrence: None)
  Receive Date: 20140327
  Receipt Date: 20140327
  Transmission Date: 20141002
  Serious: Yes (Disabling)
  Sender: FDA-Public Use
  Company Number: None

PATIENT
  Age: 89 Year
  Sex: Female
  Weight: 40.37 kg

DRUGS (2)
  1. DONEPEZIL [Suspect]
     Indication: DEMENTIA
     Dosage: 1
     Route: 048
     Dates: start: 20131218, end: 20140319
  2. DONEPEZIL [Suspect]
     Indication: HYPOTHYROIDISM
     Dosage: 1
     Route: 048
     Dates: start: 20131218, end: 20140319

REACTIONS (4)
  - Back pain [None]
  - Gait disturbance [None]
  - Gait disturbance [None]
  - Posture abnormal [None]
